FAERS Safety Report 4781655-9 (Version None)
Quarter: 2005Q3

REPORT INFORMATION
  Report Type: 
  Country: None (occurrence: None)
  Receive Date: 20050914
  Receipt Date: 20050418
  Transmission Date: 20060218
  Serious: Yes (Life-Threatening, Hospitalization)
  Sender: FDA-Public Use
  Company Number: 163-20785-05040353

PATIENT
  Age: 14 Year
  Sex: Female

DRUGS (12)
  1. THALOMID [Suspect]
     Indication: ASTROCYTOMA MALIGNANT
     Dosage: 250 MG GRADUALLY ESCALATED TO 450 MG, DAILY, ORAL
     Route: 048
     Dates: start: 20040909, end: 20041111
  2. DECADRON [Concomitant]
  3. DIAMOX [Concomitant]
  4. ZANTAC (RANITIDINE HYDROCHLORIDE) (UNKNOWN) [Concomitant]
  5. TYLENOL WITH CODEINE (PANADEINE CO) (UNKNOWN) [Concomitant]
  6. KEPPRA (LEVETIRACETAM) (UNKNOWN) [Concomitant]
  7. COLACE (DOCUSATE SODIUM) (UNKNOWN) [Concomitant]
  8. ZOFRAN (ONDANSETRON HYDROCHLORIDE) (UNKNOWN) [Concomitant]
  9. SENOKOT (SENNA FRUIT) (UNKNOWN) [Concomitant]
  10. BACTRIM [Concomitant]
  11. CELEBREX [Concomitant]
  12. ETOPOSIDE [Concomitant]

REACTIONS (2)
  - DEEP VEIN THROMBOSIS [None]
  - PULMONARY EMBOLISM [None]
